FAERS Safety Report 5700865-7 (Version None)
Quarter: 2008Q2

REPORT INFORMATION
  Report Type: 
  Country: None (occurrence: None)
  Receive Date: 20080407
  Receipt Date: 20080325
  Transmission Date: 20081010
  Serious: Yes (Hospitalization)
  Sender: FDA-Public Use
  Company Number: 2008AL001884

PATIENT
  Age: 36 Month
  Sex: Male

DRUGS (1)
  1. IBUPROFEN [Suspect]
     Indication: EAR PAIN
     Dosage: PO
     Route: 048

REACTIONS (6)
  - ATAXIA [None]
  - CONVULSION [None]
  - DIPLOPIA [None]
  - HYPOTONIA [None]
  - OVERDOSE [None]
  - VOMITING [None]
